FAERS Safety Report 24624487 (Version 1)
Quarter: 2024Q4

REPORT INFORMATION
  Report Type: Spontaneous
  Country: CN (occurrence: CN)
  Receive Date: 20241115
  Receipt Date: 20241115
  Transmission Date: 20250114
  Serious: Yes (Hospitalization)
  Sender: BAXTER
  Company Number: None

PATIENT
  Age: 47 Year
  Sex: Female
  Weight: 64.2 kg

DRUGS (8)
  1. CYCLOPHOSPHAMIDE [Suspect]
     Active Substance: CYCLOPHOSPHAMIDE
     Indication: Breast cancer in situ
     Dosage: 0.8 G, ONE TIME IN ONE DAY, DILUTED WITH 0.9% SODIUM CHLORIDE (NS) 40ML
     Route: 042
     Dates: start: 20240625, end: 20240625
  2. CYCLOPHOSPHAMIDE [Suspect]
     Active Substance: CYCLOPHOSPHAMIDE
     Indication: Breast cancer recurrent
  3. SODIUM CHLORIDE [Suspect]
     Active Substance: SODIUM CHLORIDE
     Indication: Medication dilution
     Dosage: 100 ML (0.9%), QD, USED TO DILUTE 20ML COMPOUND GLYCYRRHIZIN
     Route: 041
     Dates: start: 20240625, end: 20240627
  4. EPIRUBICIN HYDROCHLORIDE [Suspect]
     Active Substance: EPIRUBICIN HYDROCHLORIDE
     Indication: Breast cancer in situ
     Dosage: 60 MG, ONE TIME IN ONE DAY, DILUTED WITH 0.9% NS 50ML
     Route: 042
     Dates: start: 20240625, end: 20240625
  5. EPIRUBICIN HYDROCHLORIDE [Suspect]
     Active Substance: EPIRUBICIN HYDROCHLORIDE
     Indication: Breast cancer recurrent
  6. SODIUM CHLORIDE [Suspect]
     Active Substance: SODIUM CHLORIDE
     Indication: Medication dilution
     Dosage: 40 ML (0.9%), ONE TIME IN ONE DAY, USED TO DILUTE CYCLOPHOSPHAMIDE INJECTION 0.8G
     Route: 042
     Dates: start: 20240625, end: 20240625
  7. SODIUM CHLORIDE [Suspect]
     Active Substance: SODIUM CHLORIDE
     Dosage: 50 ML (0.9%), ONE TIME IN ONE DAY, USED TO DILUTE EPIRUBICIN INJECTION 60MG
     Route: 042
     Dates: start: 20240625, end: 20240625
  8. GLYCYRRHIZIN [Suspect]
     Active Substance: GLYCYRRHIZIN
     Dosage: 20 ML, QD, DILUTED WITH 0.9% NS 100 ML
     Route: 041
     Dates: start: 20240625, end: 20240627

REACTIONS (1)
  - Hepatic function abnormal [Recovering/Resolving]

NARRATIVE: CASE EVENT DATE: 20240715
